FAERS Safety Report 9334437 (Version 1)
Quarter: 2013Q2

REPORT INFORMATION
  Report Type: Spontaneous
  Country: US (occurrence: US)
  Receive Date: 20130606
  Receipt Date: 20130606
  Transmission Date: 20140414
  Serious: Yes (Other)
  Sender: FDA-Public Use
  Company Number: US-TEVA-410140USA

PATIENT
  Age: 71 Year
  Sex: Female

DRUGS (2)
  1. NOREPINEPHRINE [Suspect]
     Route: 065
  2. DOBUTAMINE [Suspect]
     Route: 065

REACTIONS (1)
  - Stress cardiomyopathy [Recovering/Resolving]
